FAERS Safety Report 19472250 (Version 1)
Quarter: 2021Q2

REPORT INFORMATION
  Report Type: Spontaneous
  Country: GB (occurrence: GB)
  Receive Date: 20210629
  Receipt Date: 20210629
  Transmission Date: 20210717
  Serious: Yes (Hospitalization)
  Sender: FDA-Public Use
  Company Number: GB-MYLANLABS-2021M1038283

PATIENT
  Age: 31 Year
  Sex: Female
  Weight: 57.15 kg

DRUGS (3)
  1. PARACETAMOL [Concomitant]
     Active Substance: ACETAMINOPHEN
     Dosage: UNK
  2. METFORMINE                         /00082701/ [Concomitant]
     Active Substance: METFORMIN HYDROCHLORIDE
     Dosage: ONLY IN LAST 3 WEEKS
  3. ESCITALOPRAM [Suspect]
     Active Substance: ESCITALOPRAM OXALATE
     Indication: ANXIETY
     Dosage: GRADUATION FROM 5MG UP TO 20MG
     Dates: start: 20210224, end: 20210609

REACTIONS (2)
  - Seizure [Recovered/Resolved]
  - Drop attacks [Not Recovered/Not Resolved]

NARRATIVE: CASE EVENT DATE: 20210512
